FAERS Safety Report 5509632-0 (Version None)
Quarter: 2007Q4

REPORT INFORMATION
  Report Type: 
  Country: None (occurrence: None)
  Receive Date: 20071108
  Receipt Date: 20071029
  Transmission Date: 20080405
  Serious: Yes (Other)
  Sender: FDA-Public Use
  Company Number: PHBS2007NL18170

PATIENT

DRUGS (1)
  1. RITALIN [Suspect]

REACTIONS (3)
  - ACCOMMODATION DISORDER [None]
  - DIPLOPIA [None]
  - STRABISMUS [None]
